FAERS Safety Report 24198199 (Version 1)
Quarter: 2024Q3

REPORT INFORMATION
  Report Type: Spontaneous
  Country: US (occurrence: US)
  Receive Date: 20240812
  Receipt Date: 20240812
  Transmission Date: 20241016
  Serious: Yes (Hospitalization, Other)
  Sender: NOVO NORDISK
  Company Number: US-NOVOPROD-1265750

PATIENT
  Age: 70 Year
  Sex: Male

DRUGS (1)
  1. LEVEMIR [Suspect]
     Active Substance: INSULIN DETEMIR
     Indication: Diabetes mellitus
     Dosage: UNK
     Route: 058
     Dates: start: 20140101, end: 20240301

REACTIONS (6)
  - Craniofacial fracture [Recovered/Resolved]
  - Fall [Not Recovered/Not Resolved]
  - Spinal operation [Recovering/Resolving]
  - Cervical vertebral fracture [Not Recovered/Not Resolved]
  - Concussion [Not Recovered/Not Resolved]
  - Blood glucose increased [Not Recovered/Not Resolved]

NARRATIVE: CASE EVENT DATE: 20210531
